FAERS Safety Report 5016762-9 (Version None)
Quarter: 2006Q2

REPORT INFORMATION
  Report Type: 
  Country: None (occurrence: None)
  Receive Date: 20060602
  Receipt Date: 20060524
  Transmission Date: 20061013
  Serious: Yes (Other)
  Sender: FDA-Public Use
  Company Number: US-JNJFOC-20060505304

PATIENT
  Age: 53 Year
  Sex: Male

DRUGS (8)
  1. RISPERDAL [Suspect]
     Route: 048
  2. RANITIDINE [Concomitant]
  3. LACTULOSE [Concomitant]
  4. LORATADINE [Concomitant]
  5. LEPIZIDE [Concomitant]
  6. METOPROLOL [Concomitant]
  7. PROZAC [Concomitant]
  8. VITAMIN B COMPLEX CAP [Concomitant]

REACTIONS (1)
  - AGRANULOCYTOSIS [None]
